FAERS Safety Report 21842191 (Version 3)
Quarter: 2023Q2

REPORT INFORMATION
  Report Type: Spontaneous
  Country: US (occurrence: US)
  Receive Date: 20230110
  Receipt Date: 20230503
  Transmission Date: 20230722
  Serious: No
  Sender: FDA-Public Use
  Company Number: US-BRISTOL-MYERS SQUIBB COMPANY-2023-003819

PATIENT
  Age: 78 Year
  Sex: Female

DRUGS (1)
  1. ORENCIA [Suspect]
     Active Substance: ABATACEPT
     Indication: Rheumatoid arthritis
     Route: 058
     Dates: start: 202004

REACTIONS (7)
  - Joint swelling [Unknown]
  - Arthralgia [Unknown]
  - Stress [Unknown]
  - Condition aggravated [Unknown]
  - Pain [Unknown]
  - Gait inability [Unknown]
  - Malaise [Unknown]
